FAERS Safety Report 9139828 (Version 2)
Quarter: 2014Q2

REPORT INFORMATION
  Report Type: Spontaneous
  Country: US (occurrence: US)
  Receive Date: 20130305
  Receipt Date: 20140530
  Transmission Date: 20141212
  Serious: No
  Sender: FDA-Public Use
  Company Number: US-ENDO PHARMACEUTICALS INC.-SPLN20120166

PATIENT
  Age: 9 Year
  Sex: Female
  Weight: 53.6 kg

DRUGS (3)
  1. SUPPRELIN LA [Suspect]
     Indication: PRECOCIOUS PUBERTY
     Route: 058
     Dates: start: 200908, end: 201008
  2. SUPPRELIN LA [Suspect]
     Route: 058
     Dates: start: 201008, end: 20110823
  3. SUPPRELIN LA [Suspect]
     Route: 058
     Dates: start: 200808, end: 200908

REACTIONS (2)
  - Hypertension [Not Recovered/Not Resolved]
  - Weight increased [Not Recovered/Not Resolved]
